FAERS Safety Report 16699438 (Version 3)
Quarter: 2019Q4

REPORT INFORMATION
  Report Type: Spontaneous
  Country: US (occurrence: US)
  Receive Date: 20190813
  Receipt Date: 20191201
  Transmission Date: 20200122
  Serious: Yes (Hospitalization)
  Sender: FDA-Public Use
  Company Number: US-VERTEX PHARMACEUTICALS-2019-007520

PATIENT
  Age: 6 Year
  Sex: Female

DRUGS (28)
  1. CREON [Concomitant]
     Active Substance: PANCRELIPASE AMYLASE\PANCRELIPASE LIPASE\PANCRELIPASE PROTEASE
  2. ZOFRAN [Concomitant]
     Active Substance: ONDANSETRON HYDROCHLORIDE
     Dosage: 4 MQ
  3. CIPRO [Concomitant]
     Active Substance: CIPROFLOXACIN HYDROCHLORIDE
  4. PRILOSEC [Concomitant]
     Active Substance: OMEPRAZOLE MAGNESIUM
     Dosage: 10 MQ
  5. FLOVENT HFA [Concomitant]
     Active Substance: FLUTICASONE PROPIONATE
     Dosage: 110 MCG
     Route: 055
  6. PERIACTIN [Concomitant]
     Active Substance: CYPROHEPTADINE HYDROCHLORIDE
     Dosage: 2 MG/5 ML SYRUP
  7. MYCOSTATIN [Concomitant]
     Active Substance: NYSTATIN
     Dosage: 100,000 UNIT/Q TOPICAL
  8. MIRALAX [Concomitant]
     Active Substance: POLYETHYLENE GLYCOL 3350
     Dosage: 17 Q/DOSE POWDER
  9. KALYDECO [Suspect]
     Active Substance: IVACAFTOR
     Indication: CYSTIC FIBROSIS
     Dosage: 2 PACKETS(150 MG), BID
     Route: 048
     Dates: start: 20190620
  10. OMEPRAZOLE. [Concomitant]
     Active Substance: OMEPRAZOLE
  11. POLYETHYLENE GLYCOL [Concomitant]
     Active Substance: POLYETHYLENE GLYCOLS
  12. CETRIZINE [Concomitant]
     Active Substance: CETIRIZINE HYDROCHLORIDE
  13. SODIUM CHLORIDE. [Concomitant]
     Active Substance: SODIUM CHLORIDE
  14. BENADRYL [Concomitant]
     Active Substance: DIPHENHYDRAMINE HYDROCHLORIDE
     Dosage: 12.5 MQ/5 ML ELIXIR
  15. ELECARE FOR INFANTS [Concomitant]
  16. CALMOSEPTINE [ZINC OXIDE] [Concomitant]
  17. FLUTICASONE. [Concomitant]
     Active Substance: FLUTICASONE
  18. PULMOZYME [Concomitant]
     Active Substance: DORNASE ALFA
     Dosage: 1 MQ/ML
     Route: 055
  19. VITAMIN D3 [Concomitant]
     Active Substance: CHOLECALCIFEROL
     Dosage: 1,000 UNIT
  20. RELIZORB [Concomitant]
  21. PROAIR HFA [Concomitant]
     Active Substance: ALBUTEROL SULFATE
  22. OMNICEF [Concomitant]
     Active Substance: CEFDINIR
     Dosage: 250 MG/5 ML SUSPENSION
  23. CYPROHEPTADINE. [Concomitant]
     Active Substance: CYPROHEPTADINE
  24. RANITIDINE. [Concomitant]
     Active Substance: RANITIDINE
  25. CHILDRENS ZYRTEC ALLERGY [Concomitant]
     Active Substance: CETIRIZINE HYDROCHLORIDE
     Dosage: 1 MQ/ML
  26. FLONASE [MOMETASONE FUROATE] [Concomitant]
     Active Substance: MOMETASONE FUROATE
  27. ZANTAC [Concomitant]
     Active Substance: RANITIDINE HYDROCHLORIDE
     Dosage: 15 MQ/ML
  28. HYPERSAL [Concomitant]
     Active Substance: SODIUM CHLORIDE
     Dosage: 1 MQ/ML SOLUTION

REACTIONS (1)
  - Adenoidectomy [Recovered/Resolved]

NARRATIVE: CASE EVENT DATE: 20190723
